FAERS Safety Report 18290456 (Version 1)
Quarter: 2020Q3

REPORT INFORMATION
  Report Type: Spontaneous
  Country: DE (occurrence: DE)
  Receive Date: 20200921
  Receipt Date: 20200921
  Transmission Date: 20201103
  Serious: Yes (Death, Other)
  Sender: FDA-Public Use
  Company Number: DE-PFIZER INC-2020362163

PATIENT
  Age: 51 Year
  Sex: Male

DRUGS (4)
  1. DOCETAXEL. [Suspect]
     Active Substance: DOCETAXEL
     Dosage: UNK
     Dates: start: 201606, end: 201611
  2. METHOTREXATE SODIUM. [Suspect]
     Active Substance: METHOTREXATE SODIUM
     Dosage: UNK
     Dates: start: 201706, end: 201708
  3. VARGATEF [Suspect]
     Active Substance: NINTEDANIB
     Dosage: UNK
     Dates: start: 201606, end: 201609
  4. ERLOTINIB [Suspect]
     Active Substance: ERLOTINIB
     Dosage: UNK
     Dates: start: 201611, end: 201708

REACTIONS (4)
  - Pleurisy [Unknown]
  - Death [Fatal]
  - Metastases to central nervous system [Unknown]
  - Metastases to meninges [Unknown]

NARRATIVE: CASE EVENT DATE: 201609
